FAERS Safety Report 13752049 (Version 3)
Quarter: 2017Q3

REPORT INFORMATION
  Report Type: Spontaneous
  Country: US (occurrence: US)
  Receive Date: 20170713
  Receipt Date: 20170814
  Transmission Date: 20171127
  Serious: No
  Sender: FDA-Public Use
  Company Number: US-PFIZER INC-2017303999

PATIENT
  Age: 51 Year
  Sex: Female

DRUGS (2)
  1. SULFASALAZINE. [Suspect]
     Active Substance: SULFASALAZINE
     Dosage: 500 MG, 2X/DAY
  2. SULFASALAZINE. [Suspect]
     Active Substance: SULFASALAZINE
     Dosage: 1000 MG, 2X/DAY (500MG 2 TABLETS TWICE DAILY)

REACTIONS (12)
  - Musculoskeletal disorder [Unknown]
  - Joint swelling [Not Recovered/Not Resolved]
  - Joint instability [Unknown]
  - Neuropathy peripheral [Unknown]
  - Hypotension [Unknown]
  - Hypoaesthesia [Unknown]
  - Arthropathy [Unknown]
  - Joint warmth [Not Recovered/Not Resolved]
  - Arthralgia [Unknown]
  - Joint crepitation [Unknown]
  - Pain [Unknown]
  - Inflammation [Unknown]
